FAERS Safety Report 12412502 (Version 1)
Quarter: 2016Q2

REPORT INFORMATION
  Report Type: Spontaneous
  Country: FR (occurrence: FR)
  Receive Date: 20160527
  Receipt Date: 20160527
  Transmission Date: 20160815
  Serious: Yes (Death, Hospitalization)
  Sender: FDA-Public Use
  Company Number: FR-SA-2016SA100133

PATIENT
  Age: 56 Year
  Sex: Male

DRUGS (6)
  1. RAMIPRIL. [Concomitant]
     Active Substance: RAMIPRIL
     Indication: HYPERTENSION
     Route: 048
     Dates: end: 20160210
  2. ATORVASTATIN [Concomitant]
     Active Substance: ATORVASTATIN
     Indication: INFARCTION
     Dosage: DOSE:1 UNIT(S)
     Route: 048
     Dates: end: 20160210
  3. CARDENSIEL [Concomitant]
     Active Substance: BISOPROLOL FUMARATE
     Indication: HYPERTENSION
     Dosage: DOSE:1 UNIT(S)
     Route: 048
     Dates: end: 20160210
  4. EUPRESSYL [Concomitant]
     Active Substance: URAPIDIL
     Indication: HYPERTENSION
     Dosage: FORM: GELULE DOSE:1 UNIT(S)
     Route: 048
     Dates: end: 20160210
  5. PANTOPRAZOLE [Concomitant]
     Active Substance: PANTOPRAZOLE SODIUM
     Indication: THERMAL BURN
     Dosage: DOSE:1 UNIT(S)
     Route: 048
     Dates: end: 20160210
  6. PLAVIX [Suspect]
     Active Substance: CLOPIDOGREL BISULFATE
     Indication: MYOCARDIAL INFARCTION
     Dosage: DOSE:1 UNIT(S)
     Route: 048
     Dates: start: 2005, end: 20160210

REACTIONS (3)
  - Brain death [Fatal]
  - Haemorrhagic stroke [Fatal]
  - Basal ganglia stroke [Fatal]

NARRATIVE: CASE EVENT DATE: 20160210
